FAERS Safety Report 17551052 (Version 3)
Quarter: 2020Q3

REPORT INFORMATION
  Report Type: Report from Study
  Country: US (occurrence: US)
  Receive Date: 20200317
  Receipt Date: 20200724
  Transmission Date: 20201102
  Serious: Yes (Other)
  Sender: FDA-Public Use
  Company Number: US-ASTELLAS-2020US009611

PATIENT
  Age: 66 Year
  Sex: Male

DRUGS (2)
  1. ENZALUTAMIDE [Suspect]
     Active Substance: ENZALUTAMIDE
     Indication: HORMONE-REFRACTORY PROSTATE CANCER
     Route: 048
     Dates: start: 20180115, end: 20200106
  2. ENZALUTAMIDE [Suspect]
     Active Substance: ENZALUTAMIDE
     Route: 048
     Dates: start: 20200108

REACTIONS (8)
  - Fatigue [Unknown]
  - Product use complaint [Not Recovered/Not Resolved]
  - Product size issue [Unknown]
  - Parkinson^s disease [Unknown]
  - Vomiting [Unknown]
  - Hot flush [Unknown]
  - Wrong technique in product usage process [Unknown]
  - Insurance issue [Unknown]

NARRATIVE: CASE EVENT DATE: 20200106
